FAERS Safety Report 25195335 (Version 2)
Quarter: 2025Q3

REPORT INFORMATION
  Report Type: Report from Study
  Country: US (occurrence: US)
  Receive Date: 20250415
  Receipt Date: 20250908
  Transmission Date: 20251021
  Serious: Yes (Other)
  Sender: ABBVIE
  Company Number: US-ABBVIE-6221172

PATIENT
  Age: 45 Year
  Sex: Female

DRUGS (1)
  1. RINVOQ [Suspect]
     Active Substance: UPADACITINIB
     Indication: Rheumatoid arthritis
     Route: 048
     Dates: start: 20230403, end: 20250317

REACTIONS (4)
  - Urinary tract infection [Unknown]
  - Lung disorder [Unknown]
  - Helicobacter infection [Not Recovered/Not Resolved]
  - Immunodeficiency [Unknown]

NARRATIVE: CASE EVENT DATE: 20240101
